FAERS Safety Report 6937785-6 (Version None)
Quarter: 2010Q3

REPORT INFORMATION
  Report Type: 
  Country: None (occurrence: None)
  Receive Date: 20100820
  Receipt Date: 20100820
  Transmission Date: 20110219
  Serious: Yes (Hospitalization)
  Sender: FDA-Public Use
  Company Number: None

PATIENT
  Age: 54 Year
  Sex: Male
  Weight: 58.514 kg

DRUGS (1)
  1. CLOZAPINE [Suspect]
     Dosage: 100 MG BID
     Dates: start: 20100625, end: 20100708

REACTIONS (4)
  - BALANCE DISORDER [None]
  - MUSCLE RIGIDITY [None]
  - NEUROLEPTIC MALIGNANT SYNDROME [None]
  - PYREXIA [None]
